FAERS Safety Report 24726160 (Version 1)
Quarter: 2024Q4

REPORT INFORMATION
  Report Type: Report from Study
  Country: NL (occurrence: NL)
  Receive Date: 20241212
  Receipt Date: 20241212
  Transmission Date: 20250114
  Serious: Yes (Other)
  Sender: PERRIGO
  Company Number: NL-MYLANLABS-2024M1107080

PATIENT
  Sex: Female

DRUGS (8)
  1. CETIRIZINE HYDROCHLORIDE [Suspect]
     Active Substance: CETIRIZINE HYDROCHLORIDE
     Indication: Drug therapy
     Dosage: UNK (PATERNAL EXPOSURE)
     Route: 065
  2. TACROLIMUS [Suspect]
     Active Substance: TACROLIMUS
     Indication: Drug therapy
     Dosage: UNK (PATERNAL EXPOSURE)
     Route: 065
  3. MYCOPHENOLATE MOFETIL [Suspect]
     Active Substance: MYCOPHENOLATE MOFETIL
     Indication: Drug therapy
     Dosage: UNK (PATERNAL EXPOSURE)
     Route: 065
  4. METOPROLOL [Suspect]
     Active Substance: METOPROLOL
     Indication: Drug therapy
     Dosage: UNK (PATERNAL EXPOSURE)
     Route: 065
  5. CANDESARTAN [Suspect]
     Active Substance: CANDESARTAN
     Indication: Drug therapy
     Dosage: UNK (PATERNAL EXPOSURE)
     Route: 065
  6. NIFEDIPINE [Suspect]
     Active Substance: NIFEDIPINE
     Indication: Drug therapy
     Dosage: UNK (PATERNAL EXPOSURE)
     Route: 065
  7. PREDNISOLONE [Suspect]
     Active Substance: PREDNISOLONE
     Indication: Drug therapy
     Dosage: UNK (PATERNAL EXPOSURE)
     Route: 065
  8. OMEPRAZOLE [Suspect]
     Active Substance: OMEPRAZOLE
     Indication: Drug therapy
     Dosage: UNK (PATERNAL EXPOSURE)
     Route: 065

REACTIONS (2)
  - Abortion spontaneous [Unknown]
  - Paternal exposure before pregnancy [Unknown]
